FAERS Safety Report 6252561-8 (Version None)
Quarter: 2009Q2

REPORT INFORMATION
  Report Type: 
  Country: None (occurrence: None)
  Receive Date: 20090629
  Receipt Date: 20090629
  Transmission Date: 20091009
  Serious: Yes (Life-Threatening, Other)
  Sender: FDA-Public Use
  Company Number: None

PATIENT
  Age: 66 Year
  Sex: Male
  Weight: 125.6464 kg

DRUGS (1)
  1. EXELON [Suspect]
     Indication: AMNESIA
     Dosage: 1 PATCH 24 HRS UPPER ARM
     Dates: start: 20090420, end: 20090521

REACTIONS (14)
  - ABDOMINAL PAIN UPPER [None]
  - ANXIETY [None]
  - CONFUSIONAL STATE [None]
  - HEADACHE [None]
  - HEART RATE INCREASED [None]
  - HYPERHIDROSIS [None]
  - HYPERTENSION [None]
  - MUSCLE SPASMS [None]
  - MUSCULAR WEAKNESS [None]
  - MYALGIA [None]
  - NECK PAIN [None]
  - PAIN IN EXTREMITY [None]
  - STRESS [None]
  - VISUAL IMPAIRMENT [None]
